FAERS Safety Report 5123572-0 (Version None)
Quarter: 2006Q4

REPORT INFORMATION
  Report Type: 
  Country: None (occurrence: None)
  Receive Date: 20061010
  Receipt Date: 20060928
  Transmission Date: 20070319
  Serious: Yes (Hospitalization)
  Sender: FDA-Public Use
  Company Number: US-JNJFOC-20041006874

PATIENT
  Sex: Male
  Weight: 79.38 kg

DRUGS (1)
  1. DURAGESIC-100 [Suspect]
     Indication: PAIN
     Route: 062

REACTIONS (9)
  - ASTHENIA [None]
  - CONSTIPATION [None]
  - DEHYDRATION [None]
  - DIZZINESS [None]
  - HEPATOMEGALY [None]
  - LIPASE INCREASED [None]
  - NAUSEA [None]
  - TREMOR [None]
  - VOMITING [None]
